FAERS Safety Report 13268673 (Version 1)
Quarter: 2017Q1

REPORT INFORMATION
  Report Type: Spontaneous
  Country: US (occurrence: US)
  Receive Date: 20170224
  Receipt Date: 20170224
  Transmission Date: 20170428
  Serious: Yes (Death, Other)
  Sender: FDA-Public Use
  Company Number: US-BAYER-2017-031240

PATIENT
  Age: 76 Year
  Sex: Male

DRUGS (1)
  1. STIVARGA [Suspect]
     Active Substance: REGORAFENIB
     Indication: COLON CANCER STAGE IV
     Dosage: AND HE ONLY TOOK 3 PILLS
     Dates: start: 201605

REACTIONS (6)
  - Toxicity to various agents [None]
  - Impaired quality of life [None]
  - Death [Fatal]
  - Activities of daily living impaired [None]
  - Suicidal ideation [None]
  - Adverse drug reaction [None]

NARRATIVE: CASE EVENT DATE: 2016
